FAERS Safety Report 10377467 (Version 1)
Quarter: 2014Q3

REPORT INFORMATION
  Report Type: Spontaneous
  Country: JP (occurrence: JP)
  Receive Date: 20140812
  Receipt Date: 20140812
  Transmission Date: 20150326
  Serious: Yes (Death)
  Sender: FDA-Public Use
  Company Number: PHHY2013JP160098

PATIENT
  Age: 92 Year
  Sex: Female

DRUGS (2)
  1. EXJADE [Suspect]
     Active Substance: DEFERASIROX
     Indication: APLASTIC ANAEMIA
     Dosage: 125 MG/DAY
  2. EXJADE [Suspect]
     Active Substance: DEFERASIROX
     Dosage: 500 MG/DAY

REACTIONS (1)
  - Aplastic anaemia [Fatal]
